FAERS Safety Report 10926194 (Version 4)
Quarter: 2015Q4

REPORT INFORMATION
  Report Type: Report from Study
  Country: US (occurrence: US)
  Receive Date: 20150318
  Receipt Date: 20151102
  Transmission Date: 20160304
  Serious: Yes (Other)
  Sender: FDA-Public Use
  Company Number: US-SA-2014SA139165

PATIENT
  Age: 50 Year
  Sex: Female

DRUGS (1)
  1. AUBAGIO [Suspect]
     Active Substance: TERIFLUNOMIDE
     Indication: MULTIPLE SCLEROSIS
     Route: 048
     Dates: start: 20140909

REACTIONS (17)
  - Feeling drunk [Unknown]
  - Upper limb fracture [Unknown]
  - Eczema [Recovered/Resolved]
  - Dry skin [Unknown]
  - Central nervous system lesion [Unknown]
  - Rash [Unknown]
  - Night sweats [Unknown]
  - Alopecia [Recovered/Resolved]
  - Sinusitis [Unknown]
  - Visual acuity reduced [Unknown]
  - Amenorrhoea [Unknown]
  - Urinary incontinence [Unknown]
  - Rash erythematous [Unknown]
  - Skin exfoliation [Recovered/Resolved]
  - Dermatitis [Recovering/Resolving]
  - Rash papular [Unknown]
  - Fall [Unknown]

NARRATIVE: CASE EVENT DATE: 2014
